FAERS Safety Report 14245328 (Version 4)
Quarter: 2018Q1

REPORT INFORMATION
  Report Type: Report from Study
  Country: FR (occurrence: FR)
  Receive Date: 20171202
  Receipt Date: 20180115
  Transmission Date: 20180508
  Serious: Yes (Hospitalization, Other)
  Sender: FDA-Public Use
  Company Number: FR-AMGEN-FRANI2017063061

PATIENT
  Age: 57 Year
  Sex: Male
  Weight: 56 kg

DRUGS (46)
  1. PANOBINOSTAT [Suspect]
     Active Substance: PANOBINOSTAT
     Indication: PLASMA CELL MYELOMA
     Dosage: UNK
     Route: 065
     Dates: start: 20170210, end: 2017
  2. CALCIDIA [Concomitant]
     Active Substance: CALCIUM POLYCARBOPHIL
     Dosage: UNK, QD (1-0-0)
  3. APROVEL [Concomitant]
     Active Substance: IRBESARTAN
     Dosage: 75 MG, 1 TABLET IN THE MORNING
  4. CARFILZOMIB [Suspect]
     Active Substance: CARFILZOMIB
     Dosage: 27 MG/M2, UNK
     Route: 065
     Dates: start: 2017
  5. IXAZOMIB [Suspect]
     Active Substance: IXAZOMIB
     Indication: PLASMA CELL MYELOMA
     Dosage: UNK
     Route: 065
     Dates: start: 201707
  6. AMOXICILLIN. [Concomitant]
     Active Substance: AMOXICILLIN
     Dosage: 500 MG, QD
  7. FUROSEMIDE. [Concomitant]
     Active Substance: FUROSEMIDE
     Dosage: 500 UNK, 1/4 -0-0
  8. TAVANIC [Concomitant]
     Active Substance: LEVOFLOXACIN
     Indication: ANTIBIOTIC PROPHYLAXIS
     Dosage: 1000 MG, UNK
     Route: 065
     Dates: start: 20170823
  9. APROVEL [Concomitant]
     Active Substance: IRBESARTAN
     Dosage: 75 MG, UNK
     Route: 065
  10. ASPIRIN. [Concomitant]
     Active Substance: ASPIRIN
     Dosage: 1 G, X 2/DAY FOR 7 DAYS
     Dates: start: 2017
  11. ZELITREX [Concomitant]
     Active Substance: VALACYCLOVIR HYDROCHLORIDE
     Dosage: UNK
  12. ZELITREX [Concomitant]
     Active Substance: VALACYCLOVIR HYDROCHLORIDE
     Dosage: 500 MG, 1 DAY OUT OF 2 (EVEN DAYS)
     Dates: start: 2017
  13. VALACICLOVIR [Concomitant]
     Active Substance: VALACYCLOVIR HYDROCHLORIDE
     Dosage: 500 MG, IN THE MORNING OF EVEN DAYS
  14. HYDROCORTISONE. [Concomitant]
     Active Substance: HYDROCORTISONE
     Dosage: 25 MG, UNK
     Route: 065
     Dates: start: 201707, end: 2017
  15. SODIUM BICARBONATE. [Concomitant]
     Active Substance: SODIUM BICARBONATE
     Dosage: 1 G, X 4 PER DAY
  16. TAVANIC [Concomitant]
     Active Substance: LEVOFLOXACIN
     Dosage: 250 MG, 1 DAY OUT OF 2, ODD DAYS
  17. CARFILZOMIB [Suspect]
     Active Substance: CARFILZOMIB
     Dosage: 112 MG, ON DAYS 1, 2, 8, 9, 15 AND 16
     Route: 065
     Dates: start: 2017, end: 20170703
  18. HYDROCORTISONE. [Concomitant]
     Active Substance: HYDROCORTISONE
     Dosage: 20 MG, UNK
     Route: 065
  19. APIDRA [Concomitant]
     Active Substance: INSULIN GLULISINE
     Dosage: 30 IU, TID (IN THE MORNING, AT NOON AND NIGHT)
     Route: 058
  20. LOVENOX [Concomitant]
     Active Substance: ENOXAPARIN SODIUM
     Dosage: 0.2 X 1/DAY
  21. AMLOR [Concomitant]
     Active Substance: AMLODIPINE BESYLATE
     Dosage: 10 MG, IN THE MORNING
     Dates: start: 20170906
  22. ENDOXAN [Suspect]
     Active Substance: CYCLOPHOSPHAMIDE
     Indication: PLASMA CELL MYELOMA
     Dosage: UNK
     Route: 065
     Dates: start: 201707
  23. ENDOXAN [Suspect]
     Active Substance: CYCLOPHOSPHAMIDE
     Dosage: 250 MG (5 TABLETS) AT 12 PM AND 7 PM ON FRIDAY THEN 10 TABLETS
     Route: 065
  24. LANSOPRAZOLE. [Concomitant]
     Active Substance: LANSOPRAZOLE
     Dosage: 15 UNK, QD, (1-0-0)
  25. TRIATEC [Concomitant]
     Active Substance: RAMIPRIL
     Dosage: 1.25 MG, IN THE MORNING AND AT NIGHT
  26. TAVANIC [Concomitant]
     Active Substance: LEVOFLOXACIN
     Dosage: 1 DAY OUT OF 2, ODD DAYS
     Route: 065
  27. CARFILZOMIB [Suspect]
     Active Substance: CARFILZOMIB
     Dosage: 45 MG/M2, UNK
     Route: 065
     Dates: start: 2017
  28. LANSOPRAZOLE. [Concomitant]
     Active Substance: LANSOPRAZOLE
     Dosage: 15 MG, QD, (AT NIGHT)
  29. AMLODIPINE [Concomitant]
     Active Substance: AMLODIPINE BESYLATE
     Dosage: 5 MG, QD (1-0-0)
  30. HYDROCORTISONE. [Concomitant]
     Active Substance: HYDROCORTISONE
     Dosage: 10 MG, 2-1-0
  31. HYDROCORTISONE. [Concomitant]
     Active Substance: HYDROCORTISONE
     Dosage: 40 MG IN MORNING, 20 MG IN NOON
     Route: 065
     Dates: start: 2017
  32. AMLOR [Concomitant]
     Active Substance: AMLODIPINE BESYLATE
     Dosage: 5 MG IN THE MORNING
  33. CARFILZOMIB [Suspect]
     Active Substance: CARFILZOMIB
     Indication: PLASMA CELL MYELOMA
     Dosage: 56 MG/M2, UNK
     Route: 065
     Dates: start: 20160907
  34. DEXAMETHASONE. [Suspect]
     Active Substance: DEXAMETHASONE
     Indication: PLASMA CELL MYELOMA
     Dosage: UNK
     Route: 065
     Dates: start: 20170210
  35. TOPALGIC (TRAMADOL HYDROCHLORIDE) [Concomitant]
     Active Substance: TRAMADOL HYDROCHLORIDE
     Indication: PAIN
     Dosage: 50 MG, X 4/DAY IF IN PAIN
  36. DOLIPRANE [Concomitant]
     Active Substance: ACETAMINOPHEN
     Dosage: 1 G, 3/DAY IF IN PAIN
  37. SODIUM BICARBONATE. [Concomitant]
     Active Substance: SODIUM BICARBONATE
     Dosage: 1 G, X 3/DAY
  38. EPOETIN ALFA [Concomitant]
     Active Substance: ERYTHROPOIETIN
     Dosage: UNK
  39. VELCADE [Suspect]
     Active Substance: BORTEZOMIB
     Indication: PLASMA CELL MYELOMA
     Dosage: UNK
     Route: 065
     Dates: start: 20170210, end: 2017
  40. IXAZOMIB [Suspect]
     Active Substance: IXAZOMIB
     Dosage: 3 MG, UNK
     Route: 065
     Dates: start: 20170901
  41. SODIUM BICARBONATE. [Concomitant]
     Active Substance: SODIUM BICARBONATE
     Dosage: 1 MG, TID
  42. LANTUS [Concomitant]
     Active Substance: INSULIN GLARGINE
     Dosage: 40 IU, QD (AT NIGHT)
     Route: 058
  43. CEFTRIAXONE. [Concomitant]
     Active Substance: CEFTRIAXONE
     Dosage: 2 G, QD
     Route: 042
     Dates: end: 20170822
  44. EPOETIN ALFA [Concomitant]
     Active Substance: ERYTHROPOIETIN
     Dosage: 30,000 1 X/WEEK SATURDAY
  45. ASPIRIN. [Concomitant]
     Active Substance: ASPIRIN
     Indication: PERICARDITIS
     Dosage: 1 G, TID
     Dates: start: 2017, end: 20170120
  46. ASPIRIN. [Concomitant]
     Active Substance: ASPIRIN
     Dosage: 1 G, X 1/DAY FOR 7 DAYS
     Dates: start: 2017, end: 2017

REACTIONS (14)
  - Pericarditis [Recovered/Resolved]
  - Acute kidney injury [Unknown]
  - Spinal pain [Unknown]
  - Klebsiella infection [Recovering/Resolving]
  - Arthralgia [Unknown]
  - Diarrhoea [Recovering/Resolving]
  - Therapeutic response decreased [Unknown]
  - Escherichia infection [Unknown]
  - Morganella infection [Recovering/Resolving]
  - Septic shock [Unknown]
  - Pleural effusion [Recovering/Resolving]
  - Oedema peripheral [Not Recovered/Not Resolved]
  - Pain in extremity [Unknown]
  - Respiratory failure [Unknown]

NARRATIVE: CASE EVENT DATE: 2016
